FAERS Safety Report 10058031 (Version 3)
Quarter: 2020Q3

REPORT INFORMATION
  Report Type: Report from Study
  Country: DE (occurrence: DE)
  Receive Date: 20140404
  Receipt Date: 20150716
  Transmission Date: 20201104
  Serious: Yes (Hospitalization)
  Sender: FDA-Public Use
  Company Number: DE-JNJFOC-20140200651

PATIENT
  Age: 46 Year
  Sex: Female
  Weight: 79.2 kg

DRUGS (14)
  1. USTEKINUMAB [Suspect]
     Active Substance: USTEKINUMAB
     Indication: CROHN^S DISEASE
     Dosage: SINGLE IV ADMINISTRATION
     Route: 058
     Dates: start: 20121101
  2. PANTOPRAZOLE [Concomitant]
     Active Substance: PANTOPRAZOLE
     Indication: GASTROINTESTINAL DISORDER
     Route: 048
     Dates: start: 2005
  3. ESTRADOT [Concomitant]
     Active Substance: ESTRADIOL
     Indication: OESTROGEN REPLACEMENT THERAPY
     Route: 062
     Dates: start: 20121214
  4. UTROGEST [Concomitant]
     Active Substance: PROGESTERONE
     Indication: HORMONE REPLACEMENT THERAPY
     Route: 062
     Dates: start: 20130107
  5. PANTOPRAZOLE [Concomitant]
     Active Substance: PANTOPRAZOLE
     Indication: GASTRIC ULCER
     Route: 048
     Dates: start: 2005
  6. VENLASAN [Concomitant]
     Route: 065
     Dates: start: 2010
  7. ENALAPRIL [Concomitant]
     Active Substance: ENALAPRIL
     Indication: HYPERTENSION
     Route: 048
     Dates: start: 2002
  8. JODTHYROX [Concomitant]
     Active Substance: LEVOTHYROXINE SODIUM\POTASSIUM IODIDE
     Indication: HYPOTHYROIDISM
     Route: 048
     Dates: start: 1981
  9. VITAMINE B12 [Concomitant]
     Indication: VITAMIN B12 DEFICIENCY
     Route: 058
     Dates: start: 2006
  10. CORNEREGEL EDO [Concomitant]
     Indication: DRY EYE
     Route: 047
  11. USTEKINUMAB [Suspect]
     Active Substance: USTEKINUMAB
     Indication: CROHN^S DISEASE
     Route: 058
     Dates: start: 20121227
  12. USTEKINUMAB [Suspect]
     Active Substance: USTEKINUMAB
     Indication: CROHN^S DISEASE
     Route: 058
     Dates: end: 20130226
  13. BUDENOFALK [Concomitant]
     Active Substance: BUDESONIDE
     Route: 065
     Dates: start: 20120911
  14. CALCILAC [Concomitant]
     Active Substance: CALCIUM CARBONATE
     Indication: OSTEOPENIA
     Route: 048
     Dates: start: 200702

REACTIONS (1)
  - Gastroenteritis [Recovered/Resolved]

NARRATIVE: CASE EVENT DATE: 20130312
